FAERS Safety Report 9424580 (Version 1)
Quarter: 2013Q3

REPORT INFORMATION
  Report Type: Spontaneous
  Country: US (occurrence: None)
  Receive Date: 20130726
  Receipt Date: 20130726
  Transmission Date: 20140515
  Serious: Yes (Other)
  Sender: FDA-Public Use
  Company Number: None

PATIENT
  Sex: Female

DRUGS (1)
  1. VALACYCLOVIR [Suspect]
     Indication: GENITAL HERPES
     Route: 048
     Dates: start: 201306, end: 201307

REACTIONS (3)
  - Diarrhoea [None]
  - Vomiting [None]
  - Dehydration [None]
